FAERS Safety Report 5740313-4 (Version None)
Quarter: 2008Q2

REPORT INFORMATION
  Report Type: 
  Country: None (occurrence: None)
  Receive Date: 20080513
  Receipt Date: 20080502
  Transmission Date: 20081010
  Serious: Yes (Disabling)
  Sender: FDA-Public Use
  Company Number: 2008SP008173

PATIENT
  Age: 57 Year
  Sex: Female

DRUGS (4)
  1. DESLORATADINE [Suspect]
     Indication: DERMATITIS CONTACT
     Dosage: 10 MG;QD;PO
     Route: 048
     Dates: start: 20010101, end: 20080401
  2. VAGIFEM [Concomitant]
  3. IMOVANE [Concomitant]
  4. LEVOTHYROXINE SODIUM [Concomitant]

REACTIONS (2)
  - CONDITION AGGRAVATED [None]
  - DERMATITIS CONTACT [None]
